FAERS Safety Report 6113143-1 (Version None)
Quarter: 2009Q1

REPORT INFORMATION
  Report Type: 
  Country: None (occurrence: None)
  Receive Date: 20090312
  Receipt Date: 20090304
  Transmission Date: 20090719
  Serious: Yes (Hospitalization)
  Sender: FDA-Public Use
  Company Number: GB-AVENTIS-200912191GDDC

PATIENT
  Age: 83 Year
  Sex: Male
  Weight: 84.8 kg

DRUGS (3)
  1. DOCETAXEL [Suspect]
     Dosage: DOSE: UNK
     Route: 042
     Dates: start: 20090210, end: 20090210
  2. ZOLEDRONIC ACID [Suspect]
     Dosage: DOSE: UNK
     Dates: start: 20090210, end: 20090210
  3. PREDNISOLONE [Suspect]
     Dosage: DOSE: UNK
     Dates: start: 20090210, end: 20090210

REACTIONS (4)
  - DEHYDRATION [None]
  - DIARRHOEA [None]
  - HYPOKALAEMIA [None]
  - NEUTROPENIC INFECTION [None]
